FAERS Safety Report 6763916-7 (Version None)
Quarter: 2010Q2

REPORT INFORMATION
  Report Type: 
  Country: None (occurrence: None)
  Receive Date: 20100610
  Receipt Date: 20100601
  Transmission Date: 20101027
  Serious: Yes (Other)
  Sender: FDA-Public Use
  Company Number: US-PFIZER INC-2010069044

PATIENT
  Age: 78 Year
  Sex: Female

DRUGS (2)
  1. ALPRAZOLAM [Suspect]
     Dosage: UNK
  2. COZAAR [Suspect]
     Dosage: UNK

REACTIONS (2)
  - ARTHRALGIA [None]
  - FOOD ALLERGY [None]
